FAERS Safety Report 18218101 (Version 2)
Quarter: 2020Q3

REPORT INFORMATION
  Report Type: Spontaneous
  Country: AR (occurrence: AR)
  Receive Date: 20200901
  Receipt Date: 20200911
  Transmission Date: 20201103
  Serious: Yes (Hospitalization)
  Sender: FDA-Public Use
  Company Number: AR-PFIZER INC-2020337255

PATIENT
  Age: 62 Year
  Sex: Female

DRUGS (2)
  1. IBRANCE [Suspect]
     Active Substance: PALBOCICLIB
     Indication: BREAST CANCER METASTATIC
     Dosage: 125 MG, CYCLIC  (DAILY, SCHEME 3X1)
     Dates: start: 20200521
  2. LETROZOLE. [Concomitant]
     Active Substance: LETROZOLE
     Dosage: UNK
     Dates: start: 20200521, end: 2020

REACTIONS (1)
  - Diverticulum [Unknown]

NARRATIVE: CASE EVENT DATE: 202008
